FAERS Safety Report 4892332-8 (Version None)
Quarter: 2006Q1

REPORT INFORMATION
  Report Type: 
  Country: None (occurrence: None)
  Receive Date: 20060124
  Receipt Date: 20060111
  Transmission Date: 20060701
  Serious: Yes (Congenital Anomaly, Other)
  Sender: FDA-Public Use
  Company Number: 2006AL000045

PATIENT
  Age: 6 Year
  Sex: Male

DRUGS (5)
  1. CARBAMAZEPINE [Suspect]
     Indication: EPILEPSY
     Dosage: 0.8 GM
  2. PHENYTOIN [Suspect]
     Indication: EPILEPSY
     Dosage: 1.5 GM
  3. VALPROIC ACID [Suspect]
     Indication: EPILEPSY
     Dosage: 2.5 GM
  4. VIGATRABIN [Concomitant]
  5. FOLIC ACID [Concomitant]

REACTIONS (14)
  - APGAR SCORE LOW [None]
  - APLASIA [None]
  - CAESAREAN SECTION [None]
  - DEXTROCARDIA [None]
  - DRUG EXPOSURE DURING PREGNANCY [None]
  - ELECTROENCEPHALOGRAM ABNORMAL [None]
  - FACIAL DYSMORPHISM [None]
  - HYPOSPADIAS [None]
  - LOW SET EARS [None]
  - MILD MENTAL RETARDATION [None]
  - MULTIPLE CONGENITAL ABNORMALITIES [None]
  - NEURODEVELOPMENTAL DISORDER [None]
  - SIMPLE PARTIAL SEIZURES [None]
  - SYNOSTOSIS [None]
